FAERS Safety Report 25838660 (Version 2)
Quarter: 2025Q3

REPORT INFORMATION
  Report Type: Spontaneous
  Country: US (occurrence: US)
  Receive Date: 20250924
  Receipt Date: 20250926
  Transmission Date: 20251021
  Serious: Yes (Other)
  Sender: ABBVIE
  Company Number: US-ABBVIE-6470408

PATIENT
  Sex: Female

DRUGS (1)
  1. VRAYLAR [Suspect]
     Active Substance: CARIPRAZINE
     Indication: Bipolar I disorder
     Route: 048

REACTIONS (5)
  - Gastric bypass [Unknown]
  - Mania [Unknown]
  - Gastrointestinal disorder [Unknown]
  - Product residue present [Unknown]
  - Off label use [Unknown]
